FAERS Safety Report 6069302-X (Version None)
Quarter: 2009Q1

REPORT INFORMATION
  Report Type: 
  Country: None (occurrence: None)
  Receive Date: 20090206
  Receipt Date: 20090127
  Transmission Date: 20090719
  Serious: Yes (Hospitalization)
  Sender: FDA-Public Use
  Company Number: US-PFIZER INC-2009161681

PATIENT
  Sex: Male
  Weight: 70.1 kg

DRUGS (9)
  1. SUTENT [Suspect]
     Indication: TRANSITIONAL CELL CARCINOMA
     Dosage: 12.5 MG, TID Q4W
     Route: 048
     Dates: start: 20081118, end: 20081126
  2. SUTENT [Suspect]
     Dosage: 12.5 MG, BID Q4W
     Route: 048
     Dates: start: 20081229, end: 20090126
  3. CALCIUM WITH VITAMIN D [Concomitant]
     Dosage: 315MG-200UNIT
  4. FOLTX [Concomitant]
     Dosage: 2.5-25-2 MG
  5. NORVASC [Concomitant]
  6. COLACE [Concomitant]
  7. HYZAAR [Concomitant]
  8. LASIX [Concomitant]
  9. SENNA [Concomitant]

REACTIONS (1)
  - MYOCARDIAL INFARCTION [None]
